FAERS Safety Report 5488470-1 (Version None)
Quarter: 2007Q4

REPORT INFORMATION
  Report Type: 
  Country: None (occurrence: None)
  Receive Date: 20071005
  Receipt Date: 20070619
  Transmission Date: 20080405
  Serious: No
  Sender: FDA-Public Use
  Company Number: PHEH2007US09016

PATIENT
  Age: 70 Year
  Sex: Female

DRUGS (2)
  1. TEKTURNA [Suspect]
     Dosage: 150 MG,QD
  2. DIOVAN [Suspect]
     Dosage: 150 MG,QD

REACTIONS (1)
  - NAUSEA [None]
